FAERS Safety Report 5506027-0 (Version None)
Quarter: 2007Q4

REPORT INFORMATION
  Report Type: 
  Country: None (occurrence: None)
  Receive Date: 20071105
  Receipt Date: 20071029
  Transmission Date: 20080405
  Serious: Yes (Hospitalization)
  Sender: FDA-Public Use
  Company Number: DE-BAYER-200711198BVD

PATIENT
  Age: 50 Year
  Sex: Female
  Weight: 64 kg

DRUGS (3)
  1. AVELOX [Suspect]
     Indication: BRONCHITIS
     Dosage: UNIT DOSE: 400 MG
     Dates: start: 20071018, end: 20071018
  2. LEVOTHYROXINE SODIUM [Concomitant]
  3. CODIOVAN 160/12.5 [Concomitant]

REACTIONS (8)
  - ABDOMINAL PAIN LOWER [None]
  - ANAPHYLACTIC REACTION [None]
  - CARDIOVASCULAR DISORDER [None]
  - HYPERHIDROSIS [None]
  - HYPERVENTILATION [None]
  - HYPOTENSION [None]
  - PULSE ABSENT [None]
  - TACHYCARDIA [None]
